FAERS Safety Report 11673163 (Version 1)
Quarter: 2015Q4

REPORT INFORMATION
  Report Type: Spontaneous
  Country: US (occurrence: US)
  Receive Date: 20151027
  Receipt Date: 20151027
  Transmission Date: 20160304
  Serious: No
  Sender: FDA-Public Use
  Company Number: US-ELI_LILLY_AND_COMPANY-US201004006718

PATIENT
  Age: 57 Year
  Sex: Female

DRUGS (3)
  1. PERI-COLACE [Concomitant]
     Active Substance: CASANTHRANOL\DOCUSATE SODIUM
     Dosage: UNK, UNKNOWN
     Dates: start: 201003
  2. FORTEO [Suspect]
     Active Substance: TERIPARATIDE
     Dosage: 20 UG, DAILY (1/D)
  3. FORTEO [Suspect]
     Active Substance: TERIPARATIDE
     Indication: OSTEOPOROSIS
     Dosage: 20 UG, DAILY (1/D)

REACTIONS (11)
  - Hypotension [Recovered/Resolved]
  - Fibromyalgia [Unknown]
  - Contusion [Unknown]
  - Dizziness [Unknown]
  - Vision blurred [Unknown]
  - Arthralgia [Unknown]
  - Injection site bruising [Unknown]
  - Constipation [Unknown]
  - Retinal injury [Unknown]
  - Back pain [Unknown]
  - Nausea [Unknown]

NARRATIVE: CASE EVENT DATE: 20100407
